FAERS Safety Report 22198775 (Version 1)
Quarter: 2023Q2

REPORT INFORMATION
  Report Type: Report from Study
  Country: ZA (occurrence: ZA)
  Receive Date: 20230411
  Receipt Date: 20230411
  Transmission Date: 20230722
  Serious: Yes (Other)
  Sender: FDA-Public Use
  Company Number: ZA-002147023-NVSC2023ZA080250

PATIENT
  Age: 58 Year
  Sex: Female

DRUGS (4)
  1. ERELZI [Suspect]
     Active Substance: ETANERCEPT-SZZS
     Indication: Rheumatoid arthritis
     Dosage: 50 MG, QW
     Route: 058
  2. METHOTREXATE [Concomitant]
     Active Substance: METHOTREXATE
     Indication: Product used for unknown indication
     Dosage: 25 MG, QW (DTT1)
     Route: 065
     Dates: start: 201506
  3. LEFLUNOMIDE [Concomitant]
     Active Substance: LEFLUNOMIDE
     Indication: Toxicity to various agents
     Dosage: 20 MG, QD (DTT3)
     Route: 065
     Dates: start: 202006, end: 202303
  4. SULFASALAZINE [Concomitant]
     Active Substance: SULFASALAZINE
     Indication: Failure to thrive
     Dosage: 1000 MG, BID (DTT4)
     Route: 065
     Dates: start: 201806, end: 202001

REACTIONS (1)
  - Laboratory test abnormal [Unknown]
